FAERS Safety Report 25815978 (Version 1)
Quarter: 2025Q3

REPORT INFORMATION
  Report Type: Spontaneous
  Country: US (occurrence: US)
  Receive Date: 20250918
  Receipt Date: 20250918
  Transmission Date: 20251020
  Serious: No
  Sender: GE HEALTHCARE
  Company Number: US-GE HEALTHCARE-2025CSU012430

PATIENT
  Age: 63 Year
  Sex: Female

DRUGS (4)
  1. OMNIPAQUE [Suspect]
     Active Substance: IOHEXOL
     Indication: Computerised tomogram thorax
     Route: 042
     Dates: start: 202507
  2. OMNIPAQUE [Suspect]
     Active Substance: IOHEXOL
     Indication: Computerised tomogram abdomen
  3. BARIUM [Concomitant]
     Active Substance: BARIUM
     Indication: Computerised tomogram thorax
     Route: 048
     Dates: start: 202507
  4. BARIUM [Concomitant]
     Active Substance: BARIUM
     Indication: Computerised tomogram abdomen

REACTIONS (4)
  - Muscular weakness [Recovering/Resolving]
  - Formication [Recovering/Resolving]
  - Limb discomfort [Recovering/Resolving]
  - Hypoaesthesia [Recovering/Resolving]

NARRATIVE: CASE EVENT DATE: 20250701
